FAERS Safety Report 18501184 (Version 1)
Quarter: 2020Q4

REPORT INFORMATION
  Report Type: Report from Study
  Country: DE (occurrence: DE)
  Receive Date: 20201113
  Receipt Date: 20201113
  Transmission Date: 20210114
  Serious: Yes (Death, Hospitalization, Other)
  Sender: FDA-Public Use
  Company Number: DE-AUROBINDO-AUR-APL-2019-048986

PATIENT
  Sex: Male

DRUGS (11)
  1. MABTHERA [Suspect]
     Active Substance: RITUXIMAB
     Indication: NON-HODGKIN^S LYMPHOMA
     Dosage: 645 MG, QOW Q2W
     Route: 042
     Dates: start: 20141202, end: 20150413
  2. VINCRISTINE SULFATE LIPOSOME INJECTION [Suspect]
     Active Substance: VINCRISTINE SULFATE
     Indication: NON-HODGKIN^S LYMPHOMA
     Dosage: 3.44 MG, QOW Q2W
     Route: 042
     Dates: start: 20141203, end: 20150311
  3. SITAGLIPTIN [Concomitant]
     Active Substance: SITAGLIPTIN
     Indication: DIABETES MELLITUS
     Dosage: 100 MG, QD DAILY
     Route: 048
  4. NOVALGIN [Concomitant]
     Indication: PAIN
     Dosage: 120 UNK, ^INPL^ DAILY QD
     Route: 048
     Dates: start: 20141202
  5. CYCLOPHOSPHAMIDE. [Suspect]
     Active Substance: CYCLOPHOSPHAMIDE
     Indication: NON-HODGKIN^S LYMPHOMA
     Dosage: 1290 MG, QOW Q2W
     Route: 042
     Dates: start: 20141203, end: 20150311
  6. VALOVAN [Concomitant]
     Indication: PAIN
     Dosage: 10018 MG, QD DAILY
     Route: 048
  7. PREDNISON [Suspect]
     Active Substance: PREDNISONE
     Indication: NON-HODGKIN^S LYMPHOMA
     Dosage: 100 MG, UNK 5 DAYS A CYCLE
     Route: 048
     Dates: start: 20141203, end: 20150315
  8. PANTOPRAZOL [Concomitant]
     Active Substance: PANTOPRAZOLE SODIUM
     Indication: PROPHYLAXIS
     Dosage: 40 MG, QD DAILY
     Route: 048
  9. PEGFILGRASTIM [Concomitant]
     Active Substance: PEGFILGRASTIM
     Indication: NON-HODGKIN^S LYMPHOMA
     Dosage: 6 MG, QOW Q2W
     Route: 058
     Dates: start: 20141205, end: 20150314
  10. METFORMIN [Concomitant]
     Active Substance: METFORMIN HYDROCHLORIDE
     Indication: DIABETES MELLITUS
     Dosage: 1700 MG, QD DAILY
     Route: 048
  11. DOXORUBICIN [Suspect]
     Active Substance: DOXORUBICIN
     Indication: NON-HODGKIN^S LYMPHOMA
     Dosage: 86 MG, QOW Q2W
     Route: 042
     Dates: start: 20141203, end: 20150311

REACTIONS (5)
  - Pancreatic carcinoma [Fatal]
  - Pneumonia [Not Recovered/Not Resolved]
  - Pain [Recovering/Resolving]
  - Anaemia [Not Recovered/Not Resolved]
  - General physical health deterioration [Not Recovered/Not Resolved]

NARRATIVE: CASE EVENT DATE: 20150429
